FAERS Safety Report 5876591-0 (Version None)
Quarter: 2008Q3

REPORT INFORMATION
  Report Type: 
  Country: None (occurrence: None)
  Receive Date: 20080910
  Receipt Date: 20080815
  Transmission Date: 20090109
  Serious: No
  Sender: FDA-Public Use
  Company Number: US-BAYER-200831109NA

PATIENT
  Age: 30 Year
  Sex: Female

DRUGS (1)
  1. MIRENA [Suspect]
     Indication: CONTRACEPTION
     Route: 015
     Dates: start: 20071101

REACTIONS (4)
  - AFFECT LABILITY [None]
  - PREGNANCY WITH CONTRACEPTIVE DEVICE [None]
  - SOCIAL AVOIDANT BEHAVIOUR [None]
  - STRESS [None]
